FAERS Safety Report 17422734 (Version 2)
Quarter: 2020Q1

REPORT INFORMATION
  Report Type: Spontaneous
  Country: US (occurrence: US)
  Receive Date: 20200215
  Receipt Date: 20200318
  Transmission Date: 20200409
  Serious: No
  Sender: FDA-Public Use
  Company Number: NVSC2020US036768

PATIENT
  Sex: Female
  Weight: 63.49 kg

DRUGS (2)
  1. CHOLESTYRAMINE FOR ORAL SUSPENSION USP [Suspect]
     Active Substance: CHOLESTYRAMINE
     Dosage: 4 UNK (9 GM PACKET WITH 4 GRAMS CHOLESTYRAMINE)
     Route: 065
  2. CHOLESTYRAMINE FOR ORAL SUSPENSION USP [Suspect]
     Active Substance: CHOLESTYRAMINE
     Indication: DIARRHOEA
     Dosage: 4 G, QD
     Route: 048
     Dates: start: 20191127

REACTIONS (2)
  - Drug ineffective [Unknown]
  - Gastric disorder [Unknown]
